FAERS Safety Report 9155974 (Version 1)
Quarter: 2013Q1

REPORT INFORMATION
  Report Type: Report from Study
  Country: US (occurrence: US)
  Receive Date: 20130311
  Receipt Date: 20130311
  Transmission Date: 20140127
  Serious: Yes (Other)
  Sender: FDA-Public Use
  Company Number: US-ABBOTT-13P-163-1059001-00

PATIENT
  Sex: Female

DRUGS (6)
  1. HUMIRA [Suspect]
     Indication: RHEUMATOID ARTHRITIS
     Dates: start: 200802, end: 2013
  2. ARAVA [Concomitant]
     Indication: RHEUMATOID ARTHRITIS
  3. NAPROSYN [Concomitant]
     Indication: RHEUMATOID ARTHRITIS
  4. MEDROL [Concomitant]
     Indication: RHEUMATOID ARTHRITIS
  5. WELLBUTRIN [Concomitant]
     Indication: DEPRESSION
  6. PAXIL [Concomitant]
     Indication: DEPRESSION

REACTIONS (6)
  - Trigger finger [Recovered/Resolved]
  - Limb operation [Recovered/Resolved]
  - Joint arthroplasty [Recovered/Resolved]
  - Tendon transfer [Recovered/Resolved]
  - Surgery [Recovered/Resolved]
  - Vaginal haemorrhage [Unknown]
